FAERS Safety Report 15065017 (Version 1)
Quarter: 2018Q2

REPORT INFORMATION
  Report Type: Report from Study
  Country: FI (occurrence: FI)
  Receive Date: 20180626
  Receipt Date: 20180626
  Transmission Date: 20180711
  Serious: Yes (Death, Other)
  Sender: FDA-Public Use
  Company Number: FI-ROCHE-2141020

PATIENT
  Sex: Female

DRUGS (7)
  1. TRASTUZUMAB. [Suspect]
     Active Substance: TRASTUZUMAB
     Indication: HER-2 POSITIVE BREAST CANCER
     Route: 042
  2. CYCLOPHOSPHAMIDE. [Suspect]
     Active Substance: CYCLOPHOSPHAMIDE
     Indication: HER-2 POSITIVE BREAST CANCER
     Route: 042
  3. DOCETAXEL. [Suspect]
     Active Substance: DOCETAXEL
     Indication: HER-2 POSITIVE BREAST CANCER
     Dosage: 100MG/M2 IN PATIENTS YOUNGER THAN 60 YEARS AND 80MG/M2 AMONG THOSE 60 YEARS OR OLDER
     Route: 042
  4. TRASTUZUMAB. [Suspect]
     Active Substance: TRASTUZUMAB
     Route: 042
  5. FLUOROURACIL. [Suspect]
     Active Substance: FLUOROURACIL
     Indication: HER-2 POSITIVE BREAST CANCER
     Route: 042
  6. EPIRUBICIN HYDROCHLORIDE. [Suspect]
     Active Substance: EPIRUBICIN HYDROCHLORIDE
     Indication: HER-2 POSITIVE BREAST CANCER
     Route: 042
  7. TRASTUZUMAB. [Suspect]
     Active Substance: TRASTUZUMAB
     Indication: HER-2 POSITIVE BREAST CANCER
     Route: 058

REACTIONS (17)
  - Infection [Fatal]
  - Cardiac failure congestive [Unknown]
  - Thrombocytopenia [Unknown]
  - Ejection fraction decreased [Unknown]
  - Vomiting [Unknown]
  - Alanine aminotransferase increased [Unknown]
  - Fatigue [Unknown]
  - Neutropenic infection [Unknown]
  - Diarrhoea [Unknown]
  - Nail disorder [Unknown]
  - Neutropenia [Unknown]
  - Febrile neutropenia [Unknown]
  - Stomatitis [Unknown]
  - Nausea [Unknown]
  - Myalgia [Unknown]
  - Pain [Unknown]
  - Dyspnoea [Unknown]
